FAERS Safety Report 6083161-0 (Version None)
Quarter: 2009Q1

REPORT INFORMATION
  Report Type: 
  Country: None (occurrence: None)
  Receive Date: 20090219
  Receipt Date: 20090209
  Transmission Date: 20090719
  Serious: Yes (Hospitalization)
  Sender: FDA-Public Use
  Company Number: PHHY2009GB04811

PATIENT
  Sex: Male

DRUGS (1)
  1. CLOZARIL [Suspect]
     Indication: SCHIZOPHRENIA
     Dosage: UNK
     Route: 048
     Dates: start: 20090131, end: 20090207

REACTIONS (4)
  - GASTRITIS [None]
  - HAEMATEMESIS [None]
  - OESOPHAGEAL RUPTURE [None]
  - VOMITING [None]
